FAERS Safety Report 10040787 (Version 1)
Quarter: 2014Q1

REPORT INFORMATION
  Report Type: Spontaneous
  Country: BR (occurrence: BR)
  Receive Date: 20140327
  Receipt Date: 20140327
  Transmission Date: 20141002
  Serious: Yes (Other)
  Sender: FDA-Public Use
  Company Number: PHHY2014BR033657

PATIENT
  Age: 45 Year
  Sex: Female
  Weight: 97 kg

DRUGS (6)
  1. HIGROTON [Suspect]
     Indication: LOCAL SWELLING
     Dosage: 1 DF (25 MG), DAILY
     Dates: start: 201211
  2. HIGROTON [Suspect]
     Dosage: 0.5 DF (25 MG), DAILY
  3. FUROSEMIDE [Suspect]
     Indication: LOCAL SWELLING
     Dosage: 0.5 DF (40 MG), DAILY
     Route: 048
     Dates: start: 201312
  4. FUROSEMIDE [Suspect]
     Dosage: 1 DF (40 MG), QOD
  5. DESOGESTREL [Concomitant]
     Indication: CONTRACEPTION
     Dosage: 1 DF, DAILY
     Route: 048
  6. ARADOIS [Concomitant]
     Indication: HYPERTENSION
     Dosage: 1 DF, DAILY
     Dates: start: 201304

REACTIONS (5)
  - Atrial fibrillation [Recovered/Resolved]
  - Atrial flutter [Recovered/Resolved]
  - Arrhythmia [Not Recovered/Not Resolved]
  - Local swelling [Recovering/Resolving]
  - Wrong technique in drug usage process [Unknown]
